FAERS Safety Report 8475961-4 (Version None)
Quarter: 2012Q2

REPORT INFORMATION
  Report Type: 
  Country: None (occurrence: None)
  Receive Date: 20120628
  Receipt Date: 20120625
  Transmission Date: 20120825
  Serious: Yes (Hospitalization)
  Sender: FDA-Public Use
  Company Number: DE-BRISTOL-MYERS SQUIBB COMPANY-13447263

PATIENT
  Age: 68 Year
  Sex: Male

DRUGS (3)
  1. CISPLATIN [Suspect]
     Indication: NON-SMALL CELL LUNG CANCER
     Dosage: LAST INF ON 17OCT2005 DELAYED FROM 17OCT2005 TO 14NOV2005
     Route: 042
     Dates: start: 20050805
  2. CETUXIMAB [Suspect]
     Indication: NON-SMALL CELL LUNG CANCER
     Dosage: DISCONTINUED ON 30SEP2005
     Route: 041
     Dates: start: 20050805, end: 20050923
  3. VINORELBINE [Suspect]
     Indication: NON-SMALL CELL LUNG CANCER
     Dosage: LAST INF ON 24OCT2005 DELAYED FROM 24OCT2005 TO 14NOV2005
     Route: 042
     Dates: start: 20050805

REACTIONS (1)
  - BLOOD CREATININE INCREASED [None]
